FAERS Safety Report 21800924 (Version 1)
Quarter: 2022Q4

REPORT INFORMATION
  Report Type: Spontaneous
  Country: BE (occurrence: None)
  Receive Date: 20221230
  Receipt Date: 20221230
  Transmission Date: 20230113
  Serious: Yes (Death, Other)
  Sender: FDA-Public Use
  Company Number: 2022A418166

PATIENT
  Age: 67 Year
  Sex: Male
  Weight: 140 kg

DRUGS (1)
  1. TAGRISSO [Suspect]
     Active Substance: OSIMERTINIB
     Indication: Lung adenocarcinoma
     Dosage: 1 TIME 1 TABLET
     Route: 048
     Dates: start: 20221114, end: 20221203

REACTIONS (7)
  - Ejection fraction decreased [Fatal]
  - Cardiac failure acute [Fatal]
  - Left atrial dilatation [Fatal]
  - Left ventricular dilatation [Fatal]
  - Right atrial dilatation [Fatal]
  - Aortic valve thickening [Fatal]
  - Mitral valve thickening [Fatal]

NARRATIVE: CASE EVENT DATE: 20221203
